FAERS Safety Report 9149214 (Version 1)
Quarter: 2013Q1

REPORT INFORMATION
  Report Type: Spontaneous
  Country: US (occurrence: None)
  Receive Date: 20130228
  Receipt Date: 20130228
  Transmission Date: 20140127
  Serious: No
  Sender: FDA-Public Use
  Company Number: None

PATIENT
  Sex: Female
  Weight: 62.6 kg

DRUGS (2)
  1. CRESTOR [Suspect]
     Indication: BLOOD CHOLESTEROL INCREASED
     Dosage: 1 TIME A DAY IN EVENING
  2. ZETIA 10 MG TAB MERCK/SCHE [Suspect]
     Dosage: 1 TIME A DAY IN EVENING

REACTIONS (2)
  - Pain in extremity [None]
  - Pain in extremity [None]
